FAERS Safety Report 12637824 (Version 2)
Quarter: 2016Q4

REPORT INFORMATION
  Report Type: Report from Study
  Country: None (occurrence: FR)
  Receive Date: 20160809
  Receipt Date: 20161111
  Transmission Date: 20170207
  Serious: Yes (Hospitalization)
  Sender: FDA-Public Use
  Company Number: FR-ABBVIE-16P-056-1696184-00

PATIENT
  Age: 64 Year
  Sex: Male
  Weight: 85 kg

DRUGS (11)
  1. RIBAVIRIN. [Suspect]
     Active Substance: RIBAVIRIN
     Indication: HEPATITIS C
     Route: 048
     Dates: start: 20150122, end: 20150325
  2. PRAVASTATIN  (VASTEN) [Concomitant]
     Indication: HYPERCHOLESTEROLAEMIA
  3. PERINDOPRIL (COVERSYL) [Concomitant]
     Indication: HYPERTENSION
  4. COVERAM [Concomitant]
     Active Substance: AMLODIPINE\PERINDOPRIL
     Indication: HYPERTENSION
     Dosage: 10/5MG
     Dates: start: 2015
  5. PRAVASTATIN  (VASTEN) [Concomitant]
     Dates: start: 201501
  6. ALLOPURINOL (ZYLORIC) [Concomitant]
     Indication: GOUT
     Dates: start: 201504
  7. SOLIFENACIN SUCCINATE (VESICARE) [Concomitant]
     Indication: URINARY INCONTINENCE
  8. ESOMEPRAZOLE (INEXIUM) [Concomitant]
     Active Substance: ESOMEPRAZOLE
     Indication: GASTROOESOPHAGEAL REFLUX DISEASE
     Dates: start: 2015
  9. TROSPIUM  (CERIS) [Concomitant]
     Indication: URINARY INCONTINENCE
     Dates: start: 201512
  10. VIEKIRAX [Suspect]
     Active Substance: OMBITASVIR\PARITAPREVIR\RITONAVIR
     Indication: HEPATITIS C
     Dosage: 12.5/75/50MG X 2
     Route: 048
     Dates: start: 20150122, end: 20150415
  11. ACETYLSALICYLATE LYSINE (KARDEGIC) [Concomitant]
     Indication: CARDIAC DISORDER

REACTIONS (1)
  - Gout [Recovered/Resolved]

NARRATIVE: CASE EVENT DATE: 20150319
